FAERS Safety Report 8185625-2 (Version None)
Quarter: 2012Q1

REPORT INFORMATION
  Report Type: 
  Country: None (occurrence: None)
  Receive Date: 20120305
  Receipt Date: 20120301
  Transmission Date: 20120608
  Serious: Yes (Other)
  Sender: FDA-Public Use
  Company Number: US-PFIZER INC-2012055428

PATIENT
  Sex: Male
  Weight: 81.633 kg

DRUGS (1)
  1. LIPITOR [Suspect]
     Dosage: 20 MG, DAILY
     Route: 048

REACTIONS (3)
  - ARTERIAL DISORDER [None]
  - MYALGIA [None]
  - ARTHRALGIA [None]
